FAERS Safety Report 6874996-2 (Version None)
Quarter: 2010Q3

REPORT INFORMATION
  Report Type: 
  Country: None (occurrence: None)
  Receive Date: 20100727
  Receipt Date: 20100720
  Transmission Date: 20110219
  Serious: Yes (Other)
  Sender: FDA-Public Use
  Company Number: US-AMGEN-QUU425758

PATIENT
  Age: 25 Year
  Sex: Female
  Weight: 46.3 kg

DRUGS (10)
  1. NEULASTA [Suspect]
     Indication: CHEMOTHERAPY
     Route: 065
  2. METHOTREXATE [Concomitant]
     Route: 048
  3. ADRIAMYCIN PFS [Concomitant]
  4. BLEOMYCIN [Concomitant]
  5. VINBLASTINE SULFATE [Concomitant]
  6. DACARBAZINE [Concomitant]
  7. PREDNISONE [Concomitant]
  8. FOLIC ACID [Concomitant]
  9. NEXIUM [Concomitant]
  10. CALCIUM WITH VITAMIN D [Concomitant]

REACTIONS (2)
  - PULMONARY FUNCTION TEST DECREASED [None]
  - TACHYCARDIA [None]
